FAERS Safety Report 8815164 (Version 1)
Quarter: 2012Q4

REPORT INFORMATION
  Report Type: Report from Study
  Country: CA (occurrence: CA)
  Receive Date: 20120928
  Receipt Date: 20120928
  Transmission Date: 20130627
  Serious: Yes (Other)
  Sender: FDA-Public Use
  Company Number: CA-JNJFOC-20120908753

PATIENT
  Sex: Male
  Weight: 109 kg

DRUGS (2)
  1. REMICADE [Suspect]
     Indication: PSORIATIC ARTHROPATHY
     Route: 042
     Dates: start: 200908
  2. FLURBIPROFEN [Concomitant]
     Route: 065

REACTIONS (2)
  - Ear disorder [Not Recovered/Not Resolved]
  - Headache [Not Recovered/Not Resolved]
